FAERS Safety Report 9420771 (Version 1)
Quarter: 2013Q3

REPORT INFORMATION
  Report Type: Spontaneous
  Country: US (occurrence: US)
  Receive Date: 20130725
  Receipt Date: 20130725
  Transmission Date: 20140515
  Serious: No
  Sender: FDA-Public Use
  Company Number: US-ABBOTT-13P-163-1086420-00

PATIENT
  Age: 61 Year
  Sex: Female

DRUGS (8)
  1. LEVOTHYROXINE [Suspect]
     Indication: HYPOTHYROIDISM
     Route: 048
  2. LEVOTHYROXINE [Suspect]
     Route: 048
     Dates: start: 2012, end: 2012
  3. TIROSINT [Suspect]
     Indication: HYPOTHYROIDISM
     Route: 048
  4. TIROSINT [Suspect]
     Route: 048
  5. TIROSINT [Suspect]
     Route: 048
  6. TIROSINT [Suspect]
     Route: 048
  7. TIROSINT [Suspect]
     Route: 048
  8. AVAPRO [Concomitant]
     Indication: HYPERTENSION

REACTIONS (3)
  - Atrial fibrillation [Not Recovered/Not Resolved]
  - Hypertension [Unknown]
  - Heart rate increased [Unknown]
